FAERS Safety Report 18329671 (Version 1)
Quarter: 2020Q3

REPORT INFORMATION
  Report Type: Spontaneous
  Country: US (occurrence: US)
  Receive Date: 20200930
  Receipt Date: 20200930
  Transmission Date: 20201103
  Serious: Yes (Other)
  Sender: FDA-Public Use
  Company Number: None

PATIENT
  Age: 17 Year
  Sex: Female
  Weight: 52.65 kg

DRUGS (4)
  1. XOLAIR [Concomitant]
     Active Substance: OMALIZUMAB
  2. BLISOVI 24 FE [Suspect]
     Active Substance: ETHINYL ESTRADIOL\NORETHINDRONE ACETATE
     Indication: DYSMENORRHOEA
     Dosage: ?          QUANTITY:1 TABLET(S);?
     Route: 048
     Dates: start: 20200712, end: 20200813
  3. ALLEGRA [Concomitant]
     Active Substance: FEXOFENADINE HYDROCHLORIDE
  4. PEPCID AC [Concomitant]
     Active Substance: FAMOTIDINE

REACTIONS (5)
  - Urticaria [None]
  - Lip swelling [None]
  - Nausea [None]
  - Eye swelling [None]
  - Dizziness [None]

NARRATIVE: CASE EVENT DATE: 20200731
